FAERS Safety Report 4609869-9 (Version None)
Quarter: 2005Q1

REPORT INFORMATION
  Report Type: 
  Country: None (occurrence: None)
  Receive Date: 20050316
  Receipt Date: 20050126
  Transmission Date: 20050727
  Serious: Yes (Disabling)
  Sender: FDA-Public Use
  Company Number: US-MERCK-0501USA04082

PATIENT
  Age: 64 Year
  Sex: Female

DRUGS (4)
  1. VIOXX [Suspect]
     Indication: OSTEOARTHRITIS
     Route: 048
     Dates: start: 20000404, end: 20040901
  2. ZOCOR [Concomitant]
     Route: 048
  3. [THERAPY UNSPECIFIED] [Concomitant]
     Indication: BLOOD PRESSURE
     Route: 065
  4. [THERAPY UNSPECIFIED] [Concomitant]
     Route: 065

REACTIONS (31)
  - ABDOMINAL PAIN [None]
  - BACK PAIN [None]
  - BALANCE DISORDER [None]
  - BLINDNESS [None]
  - BLINDNESS UNILATERAL [None]
  - BRONCHITIS [None]
  - BRONCHITIS ACUTE [None]
  - CELLULITIS [None]
  - CEREBROVASCULAR ACCIDENT [None]
  - CONSTIPATION [None]
  - DRUG INEFFECTIVE [None]
  - DYSPHAGIA [None]
  - DYSPNOEA [None]
  - DYSURIA [None]
  - EMPHYSEMA [None]
  - FATIGUE [None]
  - GENITAL PRURITUS FEMALE [None]
  - GLOSSODYNIA [None]
  - HYPOTHYROIDISM [None]
  - LYMPHOMA [None]
  - MUSCLE SPASMS [None]
  - OEDEMA PERIPHERAL [None]
  - ONYCHOMYCOSIS [None]
  - ORAL CANDIDIASIS [None]
  - PAIN IN EXTREMITY [None]
  - PELVIC PAIN [None]
  - PERIPHERAL VASCULAR DISORDER [None]
  - SINUSITIS [None]
  - STOMATITIS [None]
  - UPPER RESPIRATORY TRACT INFECTION [None]
  - WEIGHT DECREASED [None]
